FAERS Safety Report 8553974-1 (Version None)
Quarter: 2012Q3

REPORT INFORMATION
  Report Type: 
  Country: None (occurrence: None)
  Receive Date: 20120731
  Receipt Date: 20120716
  Transmission Date: 20120928
  Serious: Yes (Hospitalization, Other)
  Sender: FDA-Public Use
  Company Number: JP-WATSON-2012-13053

PATIENT
  Age: 56 Year
  Sex: Female

DRUGS (1)
  1. GEMCITABINE [Suspect]
     Indication: PANCREATIC CARCINOMA RECURRENT
     Dosage: UNK
     Route: 065

REACTIONS (5)
  - FATIGUE [None]
  - PLEURAL EFFUSION [None]
  - CONDITION AGGRAVATED [None]
  - NAUSEA [None]
  - PERICARDIAL EFFUSION [None]
